FAERS Safety Report 9101187 (Version 3)
Quarter: 2013Q2

REPORT INFORMATION
  Report Type: Spontaneous
  Country: PT (occurrence: PT)
  Receive Date: 20130215
  Receipt Date: 20130528
  Transmission Date: 20140414
  Serious: Yes (Other)
  Sender: FDA-Public Use
  Company Number: PT-BAUSCH-BL-2013-000552

PATIENT
  Age: 26 Year
  Sex: Female

DRUGS (6)
  1. YELLOX 0.9 MG/ML EYE DROPS, SOLUTION [Suspect]
     Indication: KERATITIS
     Route: 047
     Dates: start: 20130130, end: 20130131
  2. YELLOX 0.9 MG/ML EYE DROPS, SOLUTION [Suspect]
     Indication: EYE OEDEMA
  3. OPTICOL GL [Suspect]
     Indication: KERATITIS
     Route: 047
     Dates: start: 20130130, end: 20130131
  4. OPTICOL GL [Suspect]
     Indication: EYE OEDEMA
  5. PREDNIFTALMINA [Suspect]
     Indication: KERATITIS
     Dosage: 1 APPLICATION AT BEDTIME; OPHTHALMIC
     Route: 047
     Dates: start: 20130130, end: 20130131
  6. PREDNIFTALMINA [Suspect]
     Indication: EYE OEDEMA

REACTIONS (4)
  - Visual acuity reduced [Recovered/Resolved]
  - Condition aggravated [Recovered/Resolved]
  - Keratitis [Recovered/Resolved]
  - Off label use [Recovered/Resolved]
